FAERS Safety Report 13349936 (Version 1)
Quarter: 2017Q1

REPORT INFORMATION
  Report Type: Spontaneous
  Country: US (occurrence: US)
  Receive Date: 20170318
  Receipt Date: 20170318
  Transmission Date: 20170429
  Serious: Yes (Disabling, Other)
  Sender: FDA-Public Use
  Company Number: None

PATIENT
  Age: 36 Year
  Sex: Female
  Weight: 76.5 kg

DRUGS (10)
  1. DEPAKOTE [Concomitant]
     Active Substance: DIVALPROEX SODIUM
  2. PROBIOTICS [Concomitant]
     Active Substance: PROBIOTICS NOS
  3. MIRALAX [Suspect]
     Active Substance: POLYETHYLENE GLYCOL 3350
     Indication: CONSTIPATION
     Dosage: ?          QUANTITY:17 MG;?
     Route: 048
  4. ALOE JUICE [Concomitant]
  5. FLAX MEAL [Concomitant]
  6. COCONUT OIL [Concomitant]
     Active Substance: COCONUT OIL
  7. VITAMIN D [Concomitant]
     Active Substance: CHOLECALCIFEROL
  8. KLONOPIN [Concomitant]
     Active Substance: CLONAZEPAM
  9. AMBIEN [Concomitant]
     Active Substance: ZOLPIDEM TARTRATE
  10. WELLBUTRIN [Concomitant]
     Active Substance: BUPROPION HYDROCHLORIDE

REACTIONS (10)
  - Fibromyalgia [None]
  - Depression [None]
  - Confusional state [None]
  - Hyperacusis [None]
  - Insomnia [None]
  - Migraine [None]
  - Chronic fatigue syndrome [None]
  - Tic [None]
  - Amnesia [None]
  - Costochondritis [None]
